FAERS Safety Report 12674340 (Version 1)
Quarter: 2016Q3

REPORT INFORMATION
  Report Type: Spontaneous
  Country: US (occurrence: US)
  Receive Date: 20160822
  Receipt Date: 20160822
  Transmission Date: 20161109
  Serious: No
  Sender: FDA-Public Use
  Company Number: US-BEH-2015054589

PATIENT
  Age: 62 Year
  Sex: Female
  Weight: 74.84 kg

DRUGS (13)
  1. SODIUM CHLORIDE. [Concomitant]
     Active Substance: SODIUM CHLORIDE
  2. LATANOPROST. [Concomitant]
     Active Substance: LATANOPROST
  3. EPIPEN [Concomitant]
     Active Substance: EPINEPHRINE
     Indication: ANAPHYLACTIC REACTION
  4. XANAX [Concomitant]
     Active Substance: ALPRAZOLAM
  5. BREO ELLIPTA [Concomitant]
     Active Substance: FLUTICASONE FUROATE\VILANTEROL TRIFENATATE
  6. ZEMAIRA [Suspect]
     Active Substance: .ALPHA.1-PROTEINASE INHIBITOR HUMAN
     Indication: ALPHA-1 ANTI-TRYPSIN DEFICIENCY
     Route: 042
  7. DOXEPIN [Concomitant]
     Active Substance: DOXEPIN
  8. VENLAFAXINE [Concomitant]
     Active Substance: VENLAFAXINE HYDROCHLORIDE
  9. DIPHENHYDRAMINE. [Concomitant]
     Active Substance: DIPHENHYDRAMINE
     Indication: ANAPHYLACTIC REACTION
  10. DALIRESP [Concomitant]
     Active Substance: ROFLUMILAST
  11. LIDOCAINE. [Concomitant]
     Active Substance: LIDOCAINE
  12. HEPARIN [Concomitant]
     Active Substance: HEPARIN SODIUM
  13. FLONASE [Concomitant]
     Active Substance: FLUTICASONE PROPIONATE

REACTIONS (2)
  - Fatigue [Unknown]
  - Headache [Unknown]
